FAERS Safety Report 8558643-X (Version None)
Quarter: 2012Q3

REPORT INFORMATION
  Report Type: 
  Country: None (occurrence: None)
  Receive Date: 20120801
  Receipt Date: 20120723
  Transmission Date: 20120928
  Serious: Yes (Hospitalization)
  Sender: FDA-Public Use
  Company Number: ZA-ROCHE-1080957

PATIENT
  Age: 63 Year
  Sex: Male

DRUGS (2)
  1. CAPECITABINE [Suspect]
     Indication: PRODUCT USED FOR UNKNOWN INDICATION
     Route: 048
  2. CAPECITABINE [Suspect]
     Route: 048

REACTIONS (9)
  - ERYTHEMA [None]
  - PRURITUS [None]
  - SCROTAL ULCER [None]
  - STOMATITIS [None]
  - CHEILITIS [None]
  - ORAL HERPES [None]
  - TONGUE ULCERATION [None]
  - HYPERAESTHESIA [None]
  - SKIN EXFOLIATION [None]
